FAERS Safety Report 8264572-1 (Version None)
Quarter: 2012Q2

REPORT INFORMATION
  Report Type: 
  Country: None (occurrence: None)
  Receive Date: 20120403
  Receipt Date: 20120323
  Transmission Date: 20120825
  Serious: Yes (Other)
  Sender: FDA-Public Use
  Company Number: TPA2012A01549

PATIENT
  Age: 56 Year
  Sex: Male

DRUGS (1)
  1. ACTOS [Suspect]
     Indication: DIABETES MELLITUS
     Dosage: 30 MG, 1 IN 1 D
     Dates: start: 20080701, end: 20111101

REACTIONS (3)
  - BLADDER TRANSITIONAL CELL CARCINOMA [None]
  - THYROID CANCER [None]
  - METASTASES TO LYMPH NODES [None]
